FAERS Safety Report 6687996-2 (Version None)
Quarter: 2010Q2

REPORT INFORMATION
  Report Type: 
  Country: None (occurrence: None)
  Receive Date: 20100420
  Receipt Date: 20100416
  Transmission Date: 20101027
  Serious: Yes (Hospitalization)
  Sender: FDA-Public Use
  Company Number: US-BRISTOL-MYERS SQUIBB COMPANY-15065543

PATIENT
  Sex: Male

DRUGS (1)
  1. REYATAZ [Suspect]
     Indication: HIV INFECTION

REACTIONS (1)
  - LARYNGEAL MASS [None]
